FAERS Safety Report 4489432-3 (Version None)
Quarter: 2004Q4

REPORT INFORMATION
  Report Type: 
  Country: None (occurrence: None)
  Receive Date: 20041026
  Receipt Date: 20041008
  Transmission Date: 20050328
  Serious: Yes (Other)
  Sender: FDA-Public Use
  Company Number: JP_040904454

PATIENT
  Age: 53 Year
  Sex: Male
  Weight: 46 kg

DRUGS (9)
  1. GEMZAR [Suspect]
     Indication: NON-SMALL CELL LUNG CANCER
     Dosage: 1400 MG OTHER
     Route: 050
     Dates: start: 20040610, end: 20040610
  2. RANDA (CISPLATIN PHARMACIA) [Concomitant]
  3. CODEINE PHOSPHATE [Concomitant]
  4. SM POWDER [Concomitant]
  5. MARZULENE S [Concomitant]
  6. MUCOSOLVAN (AMBROXOL HYDROCHLORIDE) [Concomitant]
  7. CLARITHROMYCIN [Concomitant]
  8. BLESIN (DICLOFENAC SODIUM) [Concomitant]
  9. METHYCOBAL (MECOBALAMIN) [Concomitant]

REACTIONS (3)
  - MALIGNANT NEOPLASM PROGRESSION [None]
  - NON-SMALL CELL LUNG CANCER [None]
  - PNEUMONITIS [None]
